FAERS Safety Report 11497260 (Version 2)
Quarter: 2015Q3

REPORT INFORMATION
  Report Type: Spontaneous
  Country: US (occurrence: US)
  Receive Date: 20150911
  Receipt Date: 20150930
  Transmission Date: 20151125
  Serious: Yes (Other)
  Sender: FDA-Public Use
  Company Number: US-ASTELLAS-2015US026097

PATIENT
  Age: 81 Year
  Sex: Male

DRUGS (1)
  1. XTANDI [Suspect]
     Active Substance: ENZALUTAMIDE
     Indication: PROSTATE CANCER
     Route: 048
     Dates: start: 201507, end: 20150902

REACTIONS (7)
  - Adverse event [Unknown]
  - Rash [Recovered/Resolved]
  - Dyspnoea [Recovering/Resolving]
  - Renal failure [Unknown]
  - Pleural effusion [Unknown]
  - Decreased appetite [Unknown]
  - Drug intolerance [Unknown]

NARRATIVE: CASE EVENT DATE: 20150718
